FAERS Safety Report 16315083 (Version 2)
Quarter: 2019Q2

REPORT INFORMATION
  Report Type: Spontaneous
  Country: CN (occurrence: CN)
  Receive Date: 20190515
  Receipt Date: 20190604
  Transmission Date: 20190711
  Serious: Yes (Other)
  Sender: FDA-Public Use
  Company Number: CN-BAYER-2019-092643

PATIENT
  Age: 37 Year
  Sex: Female

DRUGS (4)
  1. CLARITYNE 10 MG [Suspect]
     Active Substance: LORATADINE
     Indication: URTICARIA
     Dosage: DAILY DOSE 1 DF
     Route: 048
     Dates: start: 20190508
  2. CLARITYNE 10 MG [Suspect]
     Active Substance: LORATADINE
     Indication: URTICARIA
     Dosage: UNK,WHEN URTICARIA ATTACKED
     Route: 048
  3. CLARITYNE 10 MG [Suspect]
     Active Substance: LORATADINE
     Indication: HYPERSENSITIVITY
     Dosage: DAILY DOSE 1 DF
     Route: 048
     Dates: start: 201812
  4. CLARITYNE 10 MG [Suspect]
     Active Substance: LORATADINE
     Indication: URTICARIA
     Dosage: UNK,WHEN URTICARIA ATTACKED
     Route: 048

REACTIONS (8)
  - Dizziness [Recovering/Resolving]
  - Syncope [Recovered/Resolved]
  - Blindness transient [Recovering/Resolving]
  - Hyperhidrosis [Recovering/Resolving]
  - Tooth loss [None]
  - Muscle spasms [None]
  - Fall [None]
  - Fatigue [Recovering/Resolving]

NARRATIVE: CASE EVENT DATE: 201812
